FAERS Safety Report 7287503-X (Version None)
Quarter: 2011Q1

REPORT INFORMATION
  Report Type: 
  Country: None (occurrence: None)
  Receive Date: 20110211
  Receipt Date: 20110203
  Transmission Date: 20110831
  Serious: Yes (Other)
  Sender: FDA-Public Use
  Company Number: TR-BRISTOL-MYERS SQUIBB COMPANY-15534571

PATIENT

DRUGS (2)
  1. FLUOROURACIL [Suspect]
     Dosage: NO CYCLE DURING PREGNANCY:1 NO CYCLE AFTER PREGNANCY:5
     Route: 064
  2. CISPLATIN [Suspect]
     Dosage: NO CYCLE DURING PREGNANCY:1 NO CYCLE AFTER PREGNANCY:5
     Route: 064

REACTIONS (2)
  - PREMATURE BABY [None]
  - SMALL FOR DATES BABY [None]
